FAERS Safety Report 15702290 (Version 1)
Quarter: 2018Q4

REPORT INFORMATION
  Report Type: Spontaneous
  Country: CA (occurrence: CA)
  Receive Date: 20181209
  Receipt Date: 20181209
  Transmission Date: 20190205
  Serious: Yes (Other)
  Sender: FDA-Public Use
  Company Number: CA-CONCORDIA PHARMACEUTICALS INC.-GSH201811-004028

PATIENT
  Sex: Male

DRUGS (10)
  1. METHOTREXAT [Suspect]
     Active Substance: METHOTREXATE
     Indication: RHEUMATOID ARTHRITIS
     Route: 065
     Dates: start: 20001102, end: 20120522
  2. ORENCIA [Suspect]
     Active Substance: ABATACEPT
     Indication: RHEUMATOID ARTHRITIS
     Route: 042
     Dates: start: 20130731, end: 20160721
  3. SULFASALAZINE. [Suspect]
     Active Substance: SULFASALAZINE
     Indication: RHEUMATOID ARTHRITIS
     Route: 065
     Dates: start: 20060526, end: 20061023
  4. METHOTREXAT [Suspect]
     Active Substance: METHOTREXATE
     Route: 065
     Dates: start: 20120612, end: 20130130
  5. METHOTREXAT [Suspect]
     Active Substance: METHOTREXATE
     Route: 065
     Dates: start: 20130731, end: 20160721
  6. HYDROXYCHLOROQUINE [Suspect]
     Active Substance: HYDROXYCHLOROQUINE
     Indication: RHEUMATOID ARTHRITIS
     Route: 065
     Dates: start: 20001102, end: 20061023
  7. LEFLUNOMIDE. [Suspect]
     Active Substance: LEFLUNOMIDE
     Indication: RHEUMATOID ARTHRITIS
     Route: 065
     Dates: start: 20061023, end: 20071128
  8. LEFLUNOMIDE. [Suspect]
     Active Substance: LEFLUNOMIDE
     Route: 065
     Dates: start: 20071128, end: 20090709
  9. HUMIRA [Suspect]
     Active Substance: ADALIMUMAB
     Indication: RHEUMATOID ARTHRITIS
     Route: 058
  10. ENBREL [Suspect]
     Active Substance: ETANERCEPT
     Indication: RHEUMATOID ARTHRITIS
     Route: 058
     Dates: start: 20090709, end: 20120522

REACTIONS (8)
  - Arthritis infective [Unknown]
  - C-reactive protein abnormal [Unknown]
  - Bone erosion [Unknown]
  - Hepatic enzyme increased [Unknown]
  - Joint swelling [Unknown]
  - Rheumatoid factor positive [Unknown]
  - Drug ineffective [Unknown]
  - Lymphadenopathy [Unknown]

NARRATIVE: CASE EVENT DATE: 20160823
